APPROVED DRUG PRODUCT: DORYX
Active Ingredient: DOXYCYCLINE HYCLATE
Strength: EQ 75MG BASE
Dosage Form/Route: CAPSULE, DELAYED RELEASE;ORAL
Application: N050582 | Product #002
Applicant: MAYNE PHARMA INTERNATIONAL PTY LTD
Approved: Aug 13, 2001 | RLD: Yes | RS: No | Type: DISCN